APPROVED DRUG PRODUCT: LEVOCETIRIZINE DIHYDROCHLORIDE
Active Ingredient: LEVOCETIRIZINE DIHYDROCHLORIDE
Strength: 5MG
Dosage Form/Route: TABLET;ORAL
Application: A213513 | Product #001
Applicant: HETERO LABS LTD UNIT III
Approved: Apr 29, 2020 | RLD: No | RS: No | Type: OTC